FAERS Safety Report 7707130-7 (Version None)
Quarter: 2011Q3

REPORT INFORMATION
  Report Type: 
  Country: None (occurrence: None)
  Receive Date: 20110824
  Receipt Date: 20110816
  Transmission Date: 20111222
  Serious: Yes (Other)
  Sender: FDA-Public Use
  Company Number: US-PURDUE-USA-2011-0070463

PATIENT
  Sex: Male

DRUGS (1)
  1. OXYCONTIN [Suspect]
     Indication: BACK PAIN
     Dosage: 40 MG, BID
     Route: 048

REACTIONS (11)
  - PAIN [None]
  - DIARRHOEA [None]
  - NAUSEA [None]
  - TREMOR [None]
  - DRUG ABUSE [None]
  - SUICIDAL IDEATION [None]
  - DRUG WITHDRAWAL SYNDROME [None]
  - VOMITING [None]
  - INTENTIONAL DRUG MISUSE [None]
  - INSOMNIA [None]
  - NERVOUSNESS [None]
